FAERS Safety Report 5166544-2 (Version None)
Quarter: 2006Q4

REPORT INFORMATION
  Report Type: 
  Country: None (occurrence: None)
  Receive Date: 20061207
  Receipt Date: 20061024
  Transmission Date: 20070319
  Serious: Yes (Other)
  Sender: FDA-Public Use
  Company Number: CA-BAYER-200616123GDS

PATIENT

DRUGS (2)
  1. SORAFENIB [Suspect]
     Indication: NEOPLASM
     Dosage: TOTAL DAILY DOSE: 800 MG
     Route: 048
  2. ERLOTINIB [Suspect]
     Indication: NEOPLASM
     Route: 065

REACTIONS (13)
  - ALOPECIA [None]
  - DERMATITIS ACNEIFORM [None]
  - DIARRHOEA [None]
  - ERYTHEMA MULTIFORME [None]
  - FATIGUE [None]
  - GASTROINTESTINAL TOXICITY [None]
  - HAIR COLOUR CHANGES [None]
  - HYPOPHOSPHATAEMIA [None]
  - JOINT STIFFNESS [None]
  - OEDEMA [None]
  - SKIN EXFOLIATION [None]
  - SPLINTER HAEMORRHAGES [None]
  - XEROSIS [None]
